FAERS Safety Report 13054499 (Version 2)
Quarter: 2017Q1

REPORT INFORMATION
  Report Type: Spontaneous
  Country: US (occurrence: US)
  Receive Date: 20161222
  Receipt Date: 20170119
  Transmission Date: 20170428
  Serious: Yes (Life-Threatening, Hospitalization)
  Sender: FDA-Public Use
  Company Number: US-BAYER-2016-242602

PATIENT
  Age: 24 Year
  Sex: Female
  Weight: 62.6 kg

DRUGS (1)
  1. SKYLA [Suspect]
     Active Substance: LEVONORGESTREL
     Indication: INTRA-UTERINE CONTRACEPTIVE DEVICE
     Dosage: 14 MCG/24HR, CONT
     Route: 015
     Dates: start: 20161009, end: 20161220

REACTIONS (2)
  - Drug ineffective [None]
  - Ectopic pregnancy [Not Recovered/Not Resolved]

NARRATIVE: CASE EVENT DATE: 20161219
